FAERS Safety Report 20365499 (Version 2)
Quarter: 2022Q1

REPORT INFORMATION
  Report Type: Spontaneous
  Country: MX (occurrence: MX)
  Receive Date: 20220122
  Receipt Date: 20220128
  Transmission Date: 20220423
  Serious: Yes (Other)
  Sender: FDA-Public Use
  Company Number: MX-NOVARTISPH-NVSC2022MX010207

PATIENT
  Sex: Male
  Weight: 78 kg

DRUGS (3)
  1. BUDESONIDE [Suspect]
     Active Substance: BUDESONIDE
     Indication: Asthma
     Dosage: 200 UG, QD (STOPPED 8 YEARS AGO APPROXIMATELY)
     Route: 055
     Dates: start: 2005
  2. BUDESONIDE [Suspect]
     Active Substance: BUDESONIDE
     Dosage: 400 UG (STARTED 8 YEARS AGO APPROXIMATELY)
     Route: 055
  3. FORADIL [Suspect]
     Active Substance: FORMOTEROL FUMARATE
     Indication: Asthma
     Dosage: 2 DOSAGE FORM, QD
     Route: 055
     Dates: start: 2005

REACTIONS (3)
  - Diabetes mellitus [Not Recovered/Not Resolved]
  - Asthma [Not Recovered/Not Resolved]
  - Product use issue [Not Recovered/Not Resolved]

NARRATIVE: CASE EVENT DATE: 20200101
